FAERS Safety Report 8454143-6 (Version None)
Quarter: 2012Q2

REPORT INFORMATION
  Report Type: 
  Country: None (occurrence: None)
  Receive Date: 20120620
  Receipt Date: 20120606
  Transmission Date: 20120825
  Serious: No
  Sender: FDA-Public Use
  Company Number: US-ASTRAZENECA-2012SE38038

PATIENT
  Age: 76 Year
  Sex: Male
  Weight: 102.1 kg

DRUGS (2)
  1. ASPIRIN [Concomitant]
  2. BRILINTA [Suspect]
     Indication: STENT PLACEMENT
     Route: 048
     Dates: start: 20120406

REACTIONS (4)
  - DRUG DOSE OMISSION [None]
  - EXTRASYSTOLES [None]
  - ADVERSE EVENT [None]
  - FATIGUE [None]
